FAERS Safety Report 9252038 (Version 2)
Quarter: 2013Q2

REPORT INFORMATION
  Report Type: Spontaneous
  Country: US (occurrence: US)
  Receive Date: 20130424
  Receipt Date: 20130613
  Transmission Date: 20140414
  Serious: No
  Sender: FDA-Public Use
  Company Number: US-PFIZER INC-2013124935

PATIENT
  Age: 67 Year
  Sex: Male

DRUGS (7)
  1. SUTENT [Suspect]
     Indication: SOFT TISSUE CANCER
     Dosage: 12.5 MG, UNK
     Dates: start: 20130329
  2. ADVIL [Concomitant]
     Dosage: UNK
  3. CRESTOR [Concomitant]
     Dosage: UNK
  4. FLOMAX [Concomitant]
     Dosage: UNK
  5. GLEEVEC [Concomitant]
     Dosage: UNK
  6. PROSCAR [Concomitant]
     Dosage: UNK
  7. SAW PALMETTO [Concomitant]
     Dosage: UNK

REACTIONS (4)
  - Night sweats [Unknown]
  - Headache [Unknown]
  - Dyspepsia [Unknown]
  - Diarrhoea [Unknown]
